FAERS Safety Report 5436733-8 (Version None)
Quarter: 2007Q3

REPORT INFORMATION
  Report Type: 
  Country: None (occurrence: None)
  Receive Date: 20070831
  Receipt Date: 20070822
  Transmission Date: 20080115
  Serious: Yes (Life-Threatening)
  Sender: FDA-Public Use
  Company Number: JP-JNJFOC-20070805003

PATIENT
  Age: 37 Year
  Sex: Male
  Weight: 58 kg

DRUGS (3)
  1. RISPERDAL [Suspect]
     Indication: DRUG USE FOR UNKNOWN INDICATION
     Route: 048
  2. VALPROATE SODIUM [Concomitant]
     Route: 048
  3. PROPRANOLOL [Concomitant]

REACTIONS (1)
  - DIABETIC COMA [None]
